FAERS Safety Report 7743156-5 (Version None)
Quarter: 2011Q3

REPORT INFORMATION
  Report Type: 
  Country: None (occurrence: None)
  Receive Date: 20110912
  Receipt Date: 20110901
  Transmission Date: 20111222
  Serious: Yes (Hospitalization)
  Sender: FDA-Public Use
  Company Number: JP-BAXTER-2011BH024512

PATIENT
  Age: 64 Year
  Sex: Male

DRUGS (20)
  1. PIRFENIDONE [Suspect]
     Route: 048
     Dates: start: 20090714, end: 20090726
  2. PREDNISOLONE [Suspect]
     Indication: IDIOPATHIC PULMONARY FIBROSIS
     Route: 048
     Dates: start: 20110704
  3. PREDNISOLONE [Suspect]
     Route: 048
     Dates: start: 20110428, end: 20110516
  4. SULFAMETHOXAZOLE [Concomitant]
     Indication: PROPHYLAXIS
     Route: 048
     Dates: start: 20110318
  5. PREDNISOLONE [Suspect]
     Route: 048
     Dates: start: 20110307, end: 20110427
  6. CLARITHROMYCIN [Concomitant]
     Indication: IDIOPATHIC PULMONARY FIBROSIS
     Route: 048
     Dates: start: 20061101
  7. CYCLOPHOSPHAMIDE [Suspect]
     Indication: IDIOPATHIC PULMONARY FIBROSIS
     Route: 065
     Dates: start: 20110524, end: 20110524
  8. PIRFENIDONE [Suspect]
     Route: 048
     Dates: start: 20090727, end: 20091020
  9. ACETYLCYSTEINE [Concomitant]
     Indication: IDIOPATHIC PULMONARY FIBROSIS
     Route: 055
     Dates: start: 20061101
  10. SOLU-MEDROL [Concomitant]
     Indication: IDIOPATHIC PULMONARY FIBROSIS
     Route: 065
     Dates: start: 20110304, end: 20110306
  11. SOLU-MEDROL [Concomitant]
     Route: 065
     Dates: start: 20110517, end: 20110519
  12. SINGULAIR [Concomitant]
     Indication: PRODUCT USED FOR UNKNOWN INDICATION
     Route: 048
     Dates: start: 20061101
  13. PULMICORT [Concomitant]
     Indication: IDIOPATHIC PULMONARY FIBROSIS
     Route: 055
     Dates: start: 20061101
  14. VENTOLIN [Concomitant]
     Indication: IDIOPATHIC PULMONARY FIBROSIS
     Route: 055
     Dates: start: 20061101
  15. OMEPRAZOLE [Concomitant]
     Indication: PROPHYLAXIS
     Route: 048
     Dates: start: 20110317, end: 20110323
  16. SOLU-MEDROL [Concomitant]
     Route: 065
     Dates: start: 20110630, end: 20110702
  17. PIRFENIDONE [Suspect]
     Indication: IDIOPATHIC PULMONARY FIBROSIS
     Route: 048
     Dates: start: 20091118
  18. PREDNISOLONE [Suspect]
     Route: 048
     Dates: start: 20110520, end: 20110629
  19. CYCLOPHOSPHAMIDE [Suspect]
     Indication: OFF LABEL USE
     Route: 065
     Dates: start: 20110524, end: 20110524
  20. NEORAL [Concomitant]
     Indication: IDIOPATHIC PULMONARY FIBROSIS
     Route: 048
     Dates: start: 20110603, end: 20110629

REACTIONS (3)
  - PNEUMONIA [None]
  - PHOTOSENSITIVITY REACTION [None]
  - RASH [None]
